FAERS Safety Report 6046111-9 (Version None)
Quarter: 2009Q1

REPORT INFORMATION
  Report Type: 
  Country: None (occurrence: None)
  Receive Date: 20090121
  Receipt Date: 20090121
  Transmission Date: 20090719
  Serious: Yes (Hospitalization)
  Sender: FDA-Public Use
  Company Number: None

PATIENT
  Age: 70 Year
  Sex: Male

DRUGS (2)
  1. WARFARIN SODIUM [Suspect]
     Indication: PULMONARY EMBOLISM
     Dosage: 5 MG EVERY DAY PO
     Route: 048
     Dates: start: 20081218, end: 20081223
  2. ARGATROBAN [Suspect]
     Indication: PULMONARY EMBOLISM
     Dosage: 250 MG PER HOUR IV
     Route: 042
     Dates: start: 20081217, end: 20081222

REACTIONS (4)
  - GASTRIC HAEMORRHAGE [None]
  - HAEMORRHAGE [None]
  - INTERNATIONAL NORMALISED RATIO ABNORMAL [None]
  - INTERNATIONAL NORMALISED RATIO INCREASED [None]
